FAERS Safety Report 8253813-2 (Version None)
Quarter: 2012Q2

REPORT INFORMATION
  Report Type: 
  Country: None (occurrence: None)
  Receive Date: 20120402
  Receipt Date: 20120314
  Transmission Date: 20120825
  Serious: No
  Sender: FDA-Public Use
  Company Number: US-AMGEN-USASP2012016738

PATIENT
  Sex: Male

DRUGS (2)
  1. ENBREL [Suspect]
     Indication: PSORIATIC ARTHROPATHY
     Dosage: 50 MG, Q2MO
     Dates: start: 20080101
  2. ENBREL [Suspect]
     Indication: PSORIASIS

REACTIONS (1)
  - PSORIATIC ARTHROPATHY [None]
